FAERS Safety Report 25900460 (Version 1)
Quarter: 2025Q4

REPORT INFORMATION
  Report Type: Spontaneous
  Country: CN (occurrence: CN)
  Receive Date: 20251009
  Receipt Date: 20251009
  Transmission Date: 20260118
  Serious: Yes (Hospitalization)
  Sender: MYLAN
  Company Number: CN-MYLANLABS-2025M1085602

PATIENT
  Age: 39 Year
  Sex: Female

DRUGS (32)
  1. MYCOPHENOLATE MOFETIL [Suspect]
     Active Substance: MYCOPHENOLATE MOFETIL
     Indication: Prophylaxis against graft versus host disease
     Dosage: 1 GRAM, QD, ON DAY +1
  2. MYCOPHENOLATE MOFETIL [Suspect]
     Active Substance: MYCOPHENOLATE MOFETIL
     Dosage: 1 GRAM, QD, ON DAY +1
     Route: 048
  3. MYCOPHENOLATE MOFETIL [Suspect]
     Active Substance: MYCOPHENOLATE MOFETIL
     Dosage: 1 GRAM, QD, ON DAY +1
     Route: 048
  4. MYCOPHENOLATE MOFETIL [Suspect]
     Active Substance: MYCOPHENOLATE MOFETIL
     Dosage: 1 GRAM, QD, ON DAY +1
  5. THYMOCYTE IMMUNE GLOBULIN NOS [Suspect]
     Active Substance: THYMOCYTE IMMUNE GLOBULIN NOS
     Indication: Bone marrow conditioning regimen
     Dosage: UNK
  6. THYMOCYTE IMMUNE GLOBULIN NOS [Suspect]
     Active Substance: THYMOCYTE IMMUNE GLOBULIN NOS
     Dosage: UNK
     Route: 065
  7. THYMOCYTE IMMUNE GLOBULIN NOS [Suspect]
     Active Substance: THYMOCYTE IMMUNE GLOBULIN NOS
     Dosage: UNK
     Route: 065
  8. THYMOCYTE IMMUNE GLOBULIN NOS [Suspect]
     Active Substance: THYMOCYTE IMMUNE GLOBULIN NOS
     Dosage: UNK
  9. CYCLOSPORINE [Suspect]
     Active Substance: CYCLOSPORINE
     Indication: Prophylaxis against graft versus host disease
     Dosage: UNK, THE TARGET BLOOD CONCENTRATION WAS MAINTAINED BETWEEN 200 ?G/L AND 300 ?G/L
  10. CYCLOSPORINE [Suspect]
     Active Substance: CYCLOSPORINE
     Dosage: UNK, THE TARGET BLOOD CONCENTRATION WAS MAINTAINED BETWEEN 200 ?G/L AND 300 ?G/L
     Route: 065
  11. CYCLOSPORINE [Suspect]
     Active Substance: CYCLOSPORINE
     Dosage: UNK, THE TARGET BLOOD CONCENTRATION WAS MAINTAINED BETWEEN 200 ?G/L AND 300 ?G/L
     Route: 065
  12. CYCLOSPORINE [Suspect]
     Active Substance: CYCLOSPORINE
     Dosage: UNK, THE TARGET BLOOD CONCENTRATION WAS MAINTAINED BETWEEN 200 ?G/L AND 300 ?G/L
  13. METHOTREXATE [Suspect]
     Active Substance: METHOTREXATE
     Indication: Prophylaxis against graft versus host disease
     Dosage: 15 MILLIGRAM/SQ. METER, ON DAY+1
  14. METHOTREXATE [Suspect]
     Active Substance: METHOTREXATE
     Dosage: 15 MILLIGRAM/SQ. METER, ON DAY+1
  15. METHOTREXATE [Suspect]
     Active Substance: METHOTREXATE
     Dosage: 15 MILLIGRAM/SQ. METER, ON DAY+1
     Route: 042
  16. METHOTREXATE [Suspect]
     Active Substance: METHOTREXATE
     Dosage: 15 MILLIGRAM/SQ. METER, ON DAY+1
     Route: 042
  17. METHOTREXATE [Suspect]
     Active Substance: METHOTREXATE
     Dosage: 10 MILLIGRAM/SQ. METER, ON DAYS + 6 AND +11
  18. METHOTREXATE [Suspect]
     Active Substance: METHOTREXATE
     Dosage: 10 MILLIGRAM/SQ. METER, ON DAYS + 6 AND +11
  19. METHOTREXATE [Suspect]
     Active Substance: METHOTREXATE
     Dosage: 10 MILLIGRAM/SQ. METER, ON DAYS + 6 AND +11
     Route: 042
  20. METHOTREXATE [Suspect]
     Active Substance: METHOTREXATE
     Dosage: 10 MILLIGRAM/SQ. METER, ON DAYS + 6 AND +11
     Route: 042
  21. BUSULFAN [Suspect]
     Active Substance: BUSULFAN
     Indication: Bone marrow conditioning regimen
     Dosage: 3.2 MILLIGRAM/KILOGRAM, QD, ON DAYS ?9 TO ?6
  22. BUSULFAN [Suspect]
     Active Substance: BUSULFAN
     Dosage: 3.2 MILLIGRAM/KILOGRAM, QD, ON DAYS ?9 TO ?6
     Route: 042
  23. BUSULFAN [Suspect]
     Active Substance: BUSULFAN
     Dosage: 3.2 MILLIGRAM/KILOGRAM, QD, ON DAYS ?9 TO ?6
     Route: 042
  24. BUSULFAN [Suspect]
     Active Substance: BUSULFAN
     Dosage: 3.2 MILLIGRAM/KILOGRAM, QD, ON DAYS ?9 TO ?6
  25. CYCLOPHOSPHAMIDE [Suspect]
     Active Substance: CYCLOPHOSPHAMIDE
     Indication: Bone marrow conditioning regimen
     Dosage: 60 MILLIGRAM/KILOGRAM, QD, ON DAYS ?5 TO ?4
  26. CYCLOPHOSPHAMIDE [Suspect]
     Active Substance: CYCLOPHOSPHAMIDE
     Dosage: 60 MILLIGRAM/KILOGRAM, QD, ON DAYS ?5 TO ?4
     Route: 065
  27. CYCLOPHOSPHAMIDE [Suspect]
     Active Substance: CYCLOPHOSPHAMIDE
     Dosage: 60 MILLIGRAM/KILOGRAM, QD, ON DAYS ?5 TO ?4
     Route: 065
  28. CYCLOPHOSPHAMIDE [Suspect]
     Active Substance: CYCLOPHOSPHAMIDE
     Dosage: 60 MILLIGRAM/KILOGRAM, QD, ON DAYS ?5 TO ?4
  29. LAPINE T-LYMPHOCYTE IMMUNE GLOBULIN [Suspect]
     Active Substance: LAPINE T-LYMPHOCYTE IMMUNE GLOBULIN
     Indication: Bone marrow conditioning regimen
     Dosage: 2.5 MILLIGRAM/KILOGRAM, QD, ON DAYS ?5 TO ?2
  30. LAPINE T-LYMPHOCYTE IMMUNE GLOBULIN [Suspect]
     Active Substance: LAPINE T-LYMPHOCYTE IMMUNE GLOBULIN
     Dosage: 2.5 MILLIGRAM/KILOGRAM, QD, ON DAYS ?5 TO ?2
     Route: 065
  31. LAPINE T-LYMPHOCYTE IMMUNE GLOBULIN [Suspect]
     Active Substance: LAPINE T-LYMPHOCYTE IMMUNE GLOBULIN
     Dosage: 2.5 MILLIGRAM/KILOGRAM, QD, ON DAYS ?5 TO ?2
     Route: 065
  32. LAPINE T-LYMPHOCYTE IMMUNE GLOBULIN [Suspect]
     Active Substance: LAPINE T-LYMPHOCYTE IMMUNE GLOBULIN
     Dosage: 2.5 MILLIGRAM/KILOGRAM, QD, ON DAYS ?5 TO ?2

REACTIONS (1)
  - Drug ineffective [Unknown]
